FAERS Safety Report 4372361-3 (Version None)
Quarter: 2004Q2

REPORT INFORMATION
  Report Type: 
  Country: None (occurrence: None)
  Receive Date: 20040526
  Receipt Date: 20040513
  Transmission Date: 20050107
  Serious: Yes (Other)
  Sender: FDA-Public Use
  Company Number: 2004EU001003

PATIENT
  Age: 17 Year
  Sex: Male

DRUGS (3)
  1. PROGRAF [Suspect]
     Indication: RENAL TRANSPLANT
     Dosage: UNKNOWN/D
     Dates: start: 19960701
  2. PREDNISOLONE [Concomitant]
  3. IMUREL [Concomitant]

REACTIONS (2)
  - APLASTIC ANAEMIA [None]
  - ERYTHEMA INFECTIOSUM [None]
